FAERS Safety Report 22362844 (Version 2)
Quarter: 2024Q3

REPORT INFORMATION
  Report Type: Report from Study
  Country: US (occurrence: US)
  Receive Date: 20230524
  Receipt Date: 20240731
  Transmission Date: 20241017
  Serious: Yes (Other)
  Sender: TAKEDA
  Company Number: US-TAKEDA-US202007706

PATIENT
  Sex: Male

DRUGS (1)
  1. HUMAN IMMUNOGLOBULIN G [Suspect]
     Active Substance: HUMAN IMMUNOGLOBULIN G
     Indication: Primary immunodeficiency syndrome
     Dosage: UNK UNK, 1/WEEK
     Route: 058

REACTIONS (9)
  - Neuropathy peripheral [Unknown]
  - Nasopharyngitis [Recovered/Resolved]
  - Psoriasis [Unknown]
  - Foot fracture [Unknown]
  - Cardiac disorder [Unknown]
  - Chronic obstructive pulmonary disease [Unknown]
  - Arthritis [Unknown]
  - Blood pressure increased [Unknown]
  - Fatigue [Unknown]
